FAERS Safety Report 10345845 (Version 1)
Quarter: 2014Q3

REPORT INFORMATION
  Report Type: Spontaneous
  Country: IT (occurrence: IT)
  Receive Date: 20140728
  Receipt Date: 20140728
  Transmission Date: 20150326
  Serious: Yes (Hospitalization)
  Sender: FDA-Public Use
  Company Number: IT-BRISTOL-MYERS SQUIBB COMPANY-21216445

PATIENT
  Age: 71 Year
  Sex: Male

DRUGS (5)
  1. COUMADIN [Suspect]
     Active Substance: WARFARIN SODIUM
     Indication: ATRIAL FIBRILLATION
     Dosage: 1DF = 1 DOSE
     Route: 048
     Dates: start: 20130101, end: 20140512
  2. EUTIROX [Concomitant]
     Active Substance: LEVOTHYROXINE SODIUM
  3. CORTONE ACETATE [Concomitant]
  4. RIVOTRIL [Concomitant]
     Active Substance: CLONAZEPAM
     Dosage: ORAL DROPS?1DF = 2.5MG/ML
  5. PANTORC [Concomitant]
     Active Substance: PANTOPRAZOLE SODIUM

REACTIONS (7)
  - Skin ulcer [Unknown]
  - Septic shock [Unknown]
  - Haematoma [Recovered/Resolved]
  - Retroperitoneal haematoma [Unknown]
  - Overdose [Unknown]
  - Diarrhoea [Unknown]
  - Adrenal insufficiency [Unknown]

NARRATIVE: CASE EVENT DATE: 2013
